FAERS Safety Report 4829147-2 (Version None)
Quarter: 2005Q4

REPORT INFORMATION
  Report Type: 
  Country: None (occurrence: None)
  Receive Date: 20051027
  Receipt Date: 20050830
  Transmission Date: 20060501
  Serious: Yes (Other)
  Sender: FDA-Public Use
  Company Number: HQWYE218131AUG05

PATIENT
  Age: 51 Year
  Sex: Female

DRUGS (1)
  1. PREMARIN [Suspect]
     Indication: MENOPAUSAL SYMPTOMS
     Dosage: SEE IMAGE, ORAL
     Route: 048
     Dates: start: 19910101

REACTIONS (1)
  - BREAST CANCER [None]
